FAERS Safety Report 20069948 (Version 1)
Quarter: 2021Q4

REPORT INFORMATION
  Report Type: Spontaneous
  Country: ES (occurrence: ES)
  Receive Date: 20211115
  Receipt Date: 20211115
  Transmission Date: 20220303
  Serious: Yes (Hospitalization, Other)
  Sender: FDA-Public Use
  Company Number: ES-ABBVIE-21K-144-4158182-00

PATIENT
  Age: 11 Year
  Sex: Male

DRUGS (2)
  1. VALPROATE SODIUM [Suspect]
     Active Substance: VALPROATE SODIUM
     Indication: Epilepsy
     Route: 065
  2. LAMOTRIGINE [Suspect]
     Active Substance: LAMOTRIGINE
     Indication: Epilepsy
     Route: 065
     Dates: start: 20180121

REACTIONS (17)
  - Stevens-Johnson syndrome [Unknown]
  - Nail discolouration [Unknown]
  - Skin discolouration [Unknown]
  - Skin burning sensation [Unknown]
  - Visual impairment [Unknown]
  - Necrosis [Unknown]
  - Burning sensation [Unknown]
  - Nail disorder [Not Recovered/Not Resolved]
  - Stomatitis [Unknown]
  - Skin fissures [Unknown]
  - Noninfective gingivitis [Unknown]
  - Glossitis [Unknown]
  - Pyrexia [Unknown]
  - Herpes virus infection [Unknown]
  - Photosensitivity reaction [Unknown]
  - Incorrect dose administered [Unknown]
  - Anxiety [Unknown]

NARRATIVE: CASE EVENT DATE: 20180213
